FAERS Safety Report 6039355-3 (Version None)
Quarter: 2009Q1

REPORT INFORMATION
  Report Type: 
  Country: None (occurrence: None)
  Receive Date: 20090115
  Receipt Date: 20090112
  Transmission Date: 20090719
  Serious: Yes (Death, Hospitalization)
  Sender: FDA-Public Use
  Company Number: US-GILEAD-2009-0019799

PATIENT
  Sex: Female
  Weight: 56.75 kg

DRUGS (5)
  1. LETAIRIS [Suspect]
     Indication: PULMONARY ARTERIAL HYPERTENSION
     Route: 048
     Dates: start: 20071110, end: 20081224
  2. VENTOLIN [Concomitant]
  3. ADVAIR DISKUS 100/50 [Concomitant]
  4. NIFEDIPINE [Concomitant]
  5. LEVOXYL [Concomitant]

REACTIONS (1)
  - LUNG NEOPLASM MALIGNANT [None]
